FAERS Safety Report 6510896-5 (Version None)
Quarter: 2009Q4

REPORT INFORMATION
  Report Type: 
  Country: None (occurrence: None)
  Receive Date: 20091222
  Receipt Date: 20090128
  Transmission Date: 20100525
  Serious: No
  Sender: FDA-Public Use
  Company Number: US-ASTRAZENECA-2009UW02583

PATIENT
  Age: 51 Year
  Sex: Male
  Weight: 130.6 kg

DRUGS (1)
  1. CRESTOR [Suspect]
     Route: 048
     Dates: start: 20081101

REACTIONS (3)
  - FATIGUE [None]
  - LABORATORY TEST ABNORMAL [None]
  - MYALGIA [None]
